FAERS Safety Report 6143513-7 (Version None)
Quarter: 2009Q2

REPORT INFORMATION
  Report Type: 
  Country: None (occurrence: None)
  Receive Date: 20090401
  Receipt Date: 20090318
  Transmission Date: 20091009
  Serious: Yes (Other)
  Sender: FDA-Public Use
  Company Number: FABR-1000719

PATIENT
  Age: 51 Year
  Sex: Male
  Weight: 74.5 kg

DRUGS (9)
  1. FABRAZYME [Suspect]
     Indication: FABRY'S DISEASE
     Dosage: 1 MG/KG, Q2W, INTRAVENOUS
     Route: 042
     Dates: start: 20020819
  2. ALTACE [Concomitant]
  3. LIPITOR [Concomitant]
  4. ATENOLOL [Concomitant]
  5. LASIX [Concomitant]
  6. ASPIRIN [Concomitant]
  7. PROTONIX [Concomitant]
  8. BICITRA (SODIUM CITRATE) [Concomitant]
  9. ADVAIR DISKUS 100/50 [Concomitant]

REACTIONS (14)
  - ABDOMINAL PAIN UPPER [None]
  - ANAEMIA [None]
  - ARTHRALGIA [None]
  - BLOOD CREATINE INCREASED [None]
  - BLOOD PRESSURE INCREASED [None]
  - CHEST DISCOMFORT [None]
  - CHILLS [None]
  - CORONARY ARTERY DISEASE [None]
  - COUGH [None]
  - DRUG DOSE OMISSION [None]
  - DYSURIA [None]
  - FLUSHING [None]
  - POOR VENOUS ACCESS [None]
  - PYREXIA [None]
